FAERS Safety Report 20979532 (Version 2)
Quarter: 2022Q4

REPORT INFORMATION
  Report Type: Spontaneous
  Country: FR (occurrence: FR)
  Receive Date: 20220620
  Receipt Date: 20221226
  Transmission Date: 20230113
  Serious: Yes (Life-Threatening, Other)
  Sender: FDA-Public Use
  Company Number: FR-AFSSAPS-NT20221791

PATIENT
  Age: 34 Year
  Sex: Female

DRUGS (4)
  1. EPHEDRINE [Suspect]
     Active Substance: EPHEDRINE
     Indication: General anaesthesia
     Dosage: 12 MILLIGRAM
     Route: 042
     Dates: start: 20220521, end: 20220521
  2. PROPOFOL [Suspect]
     Active Substance: PROPOFOL
     Indication: General anaesthesia
     Dosage: 400 MILLIGRAM
     Route: 042
     Dates: start: 20220521, end: 20220521
  3. SUCCINYLCHOLINE CHLORIDE [Suspect]
     Active Substance: SUCCINYLCHOLINE CHLORIDE
     Indication: General anaesthesia
     Dosage: 60 MILLIGRAM
     Route: 042
     Dates: start: 20220521, end: 20220521
  4. SUFENTANIL [Suspect]
     Active Substance: SUFENTANIL
     Indication: General anaesthesia
     Dosage: 15 MICROGRAM
     Route: 042
     Dates: start: 20220521, end: 20220521

REACTIONS (1)
  - Type I hypersensitivity [Recovered/Resolved]

NARRATIVE: CASE EVENT DATE: 20220521
